FAERS Safety Report 19427715 (Version 4)
Quarter: 2024Q1

REPORT INFORMATION
  Report Type: Spontaneous
  Country: PL (occurrence: PL)
  Receive Date: 20210617
  Receipt Date: 20240313
  Transmission Date: 20240410
  Serious: Yes (Life-Threatening, Hospitalization, Other)
  Sender: FDA-Public Use
  Company Number: None

PATIENT
  Age: 37 Year
  Sex: Male

DRUGS (5)
  1. MYCOPHENOLATE MOFETIL [Suspect]
     Active Substance: MYCOPHENOLATE MOFETIL
     Indication: Immunosuppressant drug therapy
     Dosage: UNK
     Route: 065
  2. TACROLIMUS [Suspect]
     Active Substance: TACROLIMUS
     Indication: Immunosuppressant drug therapy
     Dosage: UNK
     Route: 065
  3. PREDNISONE [Suspect]
     Active Substance: PREDNISONE
     Indication: Immunosuppressant drug therapy
     Dosage: UNK
     Route: 065
  4. IRON [Concomitant]
     Active Substance: IRON
     Indication: Anaemia
     Dosage: 8200 MILLIGRAM
     Route: 042
  5. IRON [Concomitant]
     Active Substance: IRON
     Dosage: UNK (TREATMENT DRUG)
     Route: 065

REACTIONS (10)
  - Cardiac failure [Recovered/Resolved]
  - Glucose tolerance impaired [Recovered/Resolved]
  - Hepatic steatosis [Recovered/Resolved]
  - Left ventricular hypertrophy [Recovered/Resolved]
  - Haemochromatosis [Recovered/Resolved]
  - Anaemia [Recovered/Resolved]
  - Transplant dysfunction [Recovered/Resolved]
  - Cytomegalovirus infection [Recovered/Resolved]
  - Enterococcal infection [Recovered/Resolved]
  - Urinary tract infection [Recovered/Resolved]

NARRATIVE: CASE EVENT DATE: 20161001
